FAERS Safety Report 14067471 (Version 2)
Quarter: 2018Q1

REPORT INFORMATION
  Report Type: Spontaneous
  Country: DE (occurrence: DE)
  Receive Date: 20171009
  Receipt Date: 20180216
  Transmission Date: 20180508
  Serious: Yes (Other)
  Sender: FDA-Public Use
  Company Number: DE-BAUSCH-BL-2017-028635

PATIENT
  Age: 74 Year
  Sex: Male
  Weight: 65 kg

DRUGS (2)
  1. ZYCLARA [Suspect]
     Active Substance: IMIQUIMOD
     Indication: ACTINIC KERATOSIS
     Route: 065
     Dates: start: 20160207, end: 20160221
  2. ZYCLARA [Suspect]
     Active Substance: IMIQUIMOD
     Route: 065

REACTIONS (1)
  - Arteritis [Recovered/Resolved]

NARRATIVE: CASE EVENT DATE: 20170615
